FAERS Safety Report 20603183 (Version 1)
Quarter: 2022Q1

REPORT INFORMATION
  Report Type: Spontaneous
  Country: US (occurrence: None)
  Receive Date: 20220316
  Receipt Date: 20220316
  Transmission Date: 20220424
  Serious: No
  Sender: FDA-Public Use
  Company Number: None

PATIENT
  Age: 29 Year
  Sex: Female
  Weight: 92.7 kg

DRUGS (4)
  1. DEXTROAMPHET SACCHARAT, AMPHET ASPARTATE, DEXTROAMPHET SULFATE AND AMP [Suspect]
     Active Substance: AMPHETAMINE ASPARTATE\AMPHETAMINE SULFATE\DEXTROAMPHETAMINE SACCHARATE\DEXTROAMPHETAMINE SULFATE
     Indication: Attention deficit hyperactivity disorder
     Dosage: FREQUENCY : TWICE A DAY;?
     Route: 048
     Dates: start: 20220308
  2. ADDERALL [Concomitant]
  3. VITAMINS [Concomitant]
     Active Substance: VITAMINS
  4. TYLENOL [Concomitant]

REACTIONS (4)
  - Product substitution issue [None]
  - Withdrawal syndrome [None]
  - Disturbance in attention [None]
  - Headache [None]

NARRATIVE: CASE EVENT DATE: 20220316
